FAERS Safety Report 18895605 (Version 2)
Quarter: 2021Q1

REPORT INFORMATION
  Report Type: Spontaneous
  Country: US (occurrence: US)
  Receive Date: 20210216
  Receipt Date: 20210224
  Transmission Date: 20210420
  Serious: Yes (Hospitalization, Other)
  Sender: FDA-Public Use
  Company Number: US-GLENMARK PHARMACEUTICALS-2021GMK052115

PATIENT
  Age: 60 Year
  Sex: Female

DRUGS (2)
  1. SIROLIMUS. [Suspect]
     Active Substance: SIROLIMUS
     Dosage: UNK; DOSE ESCALATED TO A GOAL OF 10?15 NG/ML
     Route: 065
  2. SIROLIMUS. [Suspect]
     Active Substance: SIROLIMUS
     Indication: CHYLOTHORAX
     Dosage: UNK; INITIAL GOAL OF 7?10 NG/ML
     Route: 065

REACTIONS (4)
  - Drug ineffective [Unknown]
  - Sepsis [Unknown]
  - Respiratory failure [Unknown]
  - Hypovolaemic shock [Unknown]
